FAERS Safety Report 15961208 (Version 1)
Quarter: 2019Q1

REPORT INFORMATION
  Report Type: Spontaneous
  Country: FR (occurrence: FR)
  Receive Date: 20190214
  Receipt Date: 20190214
  Transmission Date: 20190417
  Serious: Yes (Life-Threatening, Other)
  Sender: FDA-Public Use
  Company Number: FR-AUROBINDO-AUR-APL-2019-007250

PATIENT

DRUGS (17)
  1. CETIRIZINE [Suspect]
     Active Substance: CETIRIZINE HYDROCHLORIDE
     Indication: RHINITIS ALLERGIC
     Dosage: 10 MILLIGRAM, ONCE A DAY
     Route: 048
     Dates: end: 20181216
  2. ATARAX [Suspect]
     Active Substance: HYDROXYZINE HYDROCHLORIDE
     Indication: ANXIETY
     Dosage: 3 DOSAGE FORM, ONCE A DAY
     Route: 048
     Dates: end: 20181216
  3. BISOPROLOL FUMARATE. [Concomitant]
     Active Substance: BISOPROLOL FUMARATE
     Indication: HYPERTENSION
     Dosage: 10 MILLIGRAM, ONCE A DAY
     Route: 048
     Dates: end: 20181216
  4. KARDEGIC [Concomitant]
     Active Substance: ASPIRIN DL-LYSINE
     Indication: CARDIOVASCULAR EVENT PROPHYLAXIS
     Dosage: 1 DOSAGE FORM, ONCE A DAY
     Route: 048
     Dates: end: 201812
  5. OXYNORM [Suspect]
     Active Substance: OXYCODONE HYDROCHLORIDE
     Indication: PAIN
     Dosage: 1 DOSAGE FORM, EVERY FOUR HOUR
     Route: 048
     Dates: start: 20181213, end: 20181216
  6. ALLOPURINOL. [Concomitant]
     Active Substance: ALLOPURINOL
     Indication: GOUT
     Dosage: 200 MILLIGRAM, ONCE A DAY
     Route: 048
     Dates: end: 20181216
  7. CARBAMAZEPINE. [Suspect]
     Active Substance: CARBAMAZEPINE
     Indication: PSYCHOTIC DISORDER
     Dosage: 1200 MILLIGRAM, ONCE A DAY
     Route: 048
     Dates: end: 20181216
  8. EZETIMIBE. [Concomitant]
     Active Substance: EZETIMIBE
     Indication: CARDIOVASCULAR EVENT PROPHYLAXIS
     Dosage: 10 MILLIGRAM, ONCE A DAY
     Route: 048
     Dates: end: 20181216
  9. TERBUTALINE SULFATE. [Concomitant]
     Active Substance: TERBUTALINE SULFATE
     Indication: WHEEZING
     Dosage: 20 MILLIGRAM, ONCE A DAY
     Route: 055
     Dates: end: 20181216
  10. BUDESONIDE. [Concomitant]
     Active Substance: BUDESONIDE
     Indication: WHEEZING
     Dosage: 1 MILLIGRAM, ONCE A DAY
     Route: 055
     Dates: end: 20181216
  11. MOVICOL [Concomitant]
     Active Substance: POLYETHYLENE GLYCOL 3350\POTASSIUM CHLORIDE\SODIUM BICARBONATE\SODIUM CHLORIDE
     Indication: CONSTIPATION
     Dosage: UNK
     Route: 048
     Dates: end: 20181216
  12. JANUVIA [Concomitant]
     Active Substance: SITAGLIPTIN PHOSPHATE
     Indication: TYPE 2 DIABETES MELLITUS
     Dosage: 1 DOSAGE FORM, ONCE A DAY
     Route: 048
     Dates: end: 20181216
  13. PARACETAMOL [Concomitant]
     Active Substance: ACETAMINOPHEN
     Indication: PAIN
     Dosage: UNK
     Route: 048
  14. LOVENOX [Concomitant]
     Active Substance: ENOXAPARIN SODIUM
     Indication: THROMBOSIS PROPHYLAXIS
     Dosage: 1 DOSAGE FORM, ONCE A DAY
     Route: 058
     Dates: end: 201801
  15. RAMIPRIL. [Concomitant]
     Active Substance: RAMIPRIL
     Indication: HYPERTENSION
     Dosage: 10 MILLIGRAM, ONCE A DAY
     Route: 048
     Dates: end: 20181216
  16. SIMVASTATINE [Concomitant]
     Active Substance: SIMVASTATIN
     Indication: CARDIOVASCULAR EVENT PROPHYLAXIS
     Dosage: 40 MILLIGRAM, ONCE A DAY
     Route: 048
     Dates: end: 20181216
  17. PANTOPRAZOLE [Concomitant]
     Active Substance: PANTOPRAZOLE
     Indication: PROPHYLAXIS AGAINST GASTROINTESTINAL ULCER
     Dosage: 20 MILLIGRAM, ONCE A DAY
     Route: 048
     Dates: end: 20181216

REACTIONS (1)
  - Hypercapnic coma [Recovered/Resolved]

NARRATIVE: CASE EVENT DATE: 20181216
